FAERS Safety Report 21151791 (Version 1)
Quarter: 2022Q3

REPORT INFORMATION
  Report Type: Spontaneous
  Country: US (occurrence: US)
  Receive Date: 20220730
  Receipt Date: 20220730
  Transmission Date: 20221026
  Serious: No
  Sender: FDA-Public Use
  Company Number: US-TEVA-2022-US-2057451

PATIENT
  Sex: Female

DRUGS (2)
  1. BUSPIRONE [Suspect]
     Active Substance: BUSPIRONE HYDROCHLORIDE
     Indication: Product used for unknown indication
     Route: 065
  2. PROTONIX [Suspect]
     Active Substance: PANTOPRAZOLE SODIUM
     Indication: Gastrooesophageal reflux disease
     Route: 065
     Dates: start: 202205

REACTIONS (2)
  - Bladder spasm [Unknown]
  - Genito-pelvic pain/penetration disorder [Unknown]
